FAERS Safety Report 20189345 (Version 3)
Quarter: 2022Q1

REPORT INFORMATION
  Report Type: Spontaneous
  Country: CO (occurrence: CO)
  Receive Date: 20211215
  Receipt Date: 20220310
  Transmission Date: 20220423
  Serious: No
  Sender: FDA-Public Use
  Company Number: CO-PFIZER INC-2020364512

PATIENT
  Age: 9 Year
  Sex: Male

DRUGS (2)
  1. GENOTROPIN [Suspect]
     Active Substance: SOMATROPIN
     Indication: Growth hormone deficiency
     Dosage: 1.2 MG, DAILY
     Dates: start: 201908
  2. GENOTROPIN [Suspect]
     Active Substance: SOMATROPIN
     Dosage: 1.2 MG, DAILY
     Route: 058
     Dates: start: 202003, end: 20200917

REACTIONS (3)
  - Drug dose omission by device [Unknown]
  - Device failure [Unknown]
  - Device issue [Unknown]

NARRATIVE: CASE EVENT DATE: 20200917
